FAERS Safety Report 22128133 (Version 1)
Quarter: 2023Q1

REPORT INFORMATION
  Report Type: Spontaneous
  Country: US (occurrence: US)
  Receive Date: 20230323
  Receipt Date: 20230323
  Transmission Date: 20230417
  Serious: No
  Sender: FDA-Public Use
  Company Number: US-ALLERGAN-2237950US

PATIENT
  Age: 39 Year
  Sex: Female

DRUGS (1)
  1. VRAYLAR [Suspect]
     Active Substance: CARIPRAZINE
     Indication: Psychotic disorder
     Dosage: 1.5 MG
     Route: 048

REACTIONS (3)
  - Facial pain [Recovered/Resolved]
  - Muscle contractions involuntary [Recovered/Resolved]
  - Skin wrinkling [Recovered/Resolved]
